FAERS Safety Report 26091200 (Version 1)
Quarter: 2025Q4

REPORT INFORMATION
  Report Type: Spontaneous
  Country: GB (occurrence: GB)
  Receive Date: 20251126
  Receipt Date: 20251126
  Transmission Date: 20260118
  Serious: Yes (Other)
  Sender: AZURITY PHARMACEUTICALS
  Company Number: GB-AZURITY PHARMACEUTICALS, INC.-AZR202511-003464

PATIENT
  Age: 61 Year
  Sex: Female

DRUGS (2)
  1. METARAMINOL BITARTRATE [Suspect]
     Active Substance: METARAMINOL BITARTRATE
     Indication: Vasopressive therapy
     Dosage: UNK
  2. DEXTROSE [Suspect]
     Active Substance: DEXTROSE MONOHYDRATE
     Indication: Vasopressive therapy
     Dosage: UNK (10 PERCENT)

REACTIONS (1)
  - Calciphylaxis [Recovering/Resolving]
